FAERS Safety Report 6834938-2 (Version None)
Quarter: 2010Q3

REPORT INFORMATION
  Report Type: 
  Country: None (occurrence: None)
  Receive Date: 20100712
  Receipt Date: 20070420
  Transmission Date: 20110219
  Serious: No
  Sender: FDA-Public Use
  Company Number: US-PFIZER INC-2007033370

PATIENT
  Sex: Female
  Weight: 63.5 kg

DRUGS (13)
  1. CHANTIX [Suspect]
     Indication: SMOKING CESSATION THERAPY
     Dates: start: 20070409
  2. KLONOPIN [Concomitant]
  3. LOTREL [Concomitant]
  4. PROTONIX [Concomitant]
  5. SYNTHROID [Concomitant]
  6. ZOCOR [Concomitant]
  7. ZAROXOLYN [Concomitant]
  8. POTASSIUM [Concomitant]
  9. REGLAN [Concomitant]
  10. METHYLPREDNISOLONE [Concomitant]
     Indication: CARPAL TUNNEL SYNDROME
  11. CITALOPRAM HYDROBROMIDE [Concomitant]
  12. LINSEED OIL [Concomitant]
  13. PYRIDOXINE HYDROCHLORIDE [Concomitant]
     Indication: CARPAL TUNNEL SYNDROME

REACTIONS (3)
  - COUGH [None]
  - INCREASED UPPER AIRWAY SECRETION [None]
  - OROPHARYNGEAL DISCOMFORT [None]
